FAERS Safety Report 23230771 (Version 3)
Quarter: 2023Q4

REPORT INFORMATION
  Report Type: Spontaneous
  Country: CY (occurrence: CY)
  Receive Date: 20231127
  Receipt Date: 20231206
  Transmission Date: 20240110
  Serious: Yes (Hospitalization, Other)
  Sender: FDA-Public Use
  Company Number: CY-BAYER-2023A165301

PATIENT
  Age: 27 Year
  Sex: Female

DRUGS (1)
  1. GADOBUTROL [Suspect]
     Active Substance: GADOBUTROL
     Indication: Magnetic resonance imaging head
     Dosage: 5 ML, ONCE
     Route: 042
     Dates: start: 202311, end: 202311

REACTIONS (9)
  - Eczema [Recovering/Resolving]
  - Throat tightness [Recovered/Resolved]
  - General physical health deterioration [Recovered/Resolved]
  - Tachypnoea [Recovered/Resolved]
  - Cyanosis [Recovered/Resolved]
  - Blood pressure increased [Recovered/Resolved]
  - Rash [Recovered/Resolved]
  - Hypertension [Recovered/Resolved]
  - Chills [Recovered/Resolved]

NARRATIVE: CASE EVENT DATE: 20231113
